FAERS Safety Report 14064727 (Version 1)
Quarter: 2017Q4

REPORT INFORMATION
  Report Type: Spontaneous
  Country: CH (occurrence: CH)
  Receive Date: 20171009
  Receipt Date: 20171009
  Transmission Date: 20180321
  Serious: Yes (Other)
  Sender: FDA-Public Use
  Company Number: CH-B. BRAUN MEDICAL INC.-2029337

PATIENT
  Age: 75 Year
  Sex: Female

DRUGS (12)
  1. DOSPIR (IPRATROPIUM BROMIDE/SALBUTAMOL SULFATE) [Suspect]
     Active Substance: ALBUTEROL SULFATE\IPRATROPIUM BROMIDE
  2. TOREM (TORASEMIDE) [Suspect]
     Active Substance: TORSEMIDE
  3. CEFTRIAXONE SODIUM. [Suspect]
     Active Substance: CEFTRIAXONE SODIUM
     Route: 042
     Dates: start: 20160409, end: 20160411
  4. CALCIMAGON D3 (COLECALCIFEROL/CALCIUM CARBONATE) [Suspect]
     Active Substance: CALCIUM CARBONATE\CHOLECALCIFEROL
  5. LYRICA [Suspect]
     Active Substance: PREGABALIN
  6. METRONIDAZOLE. [Suspect]
     Active Substance: METRONIDAZOLE
     Dates: start: 20160413, end: 20160419
  7. ACETYLCYSTEINE. [Suspect]
     Active Substance: ACETYLCYSTEINE
  8. METRONIDAZOLE. [Suspect]
     Active Substance: METRONIDAZOLE
     Indication: ENTERITIS INFECTIOUS
     Dates: start: 20160323, end: 20160330
  9. XARELTO [Suspect]
     Active Substance: RIVAROXABAN
  10. BISOPROLOL FUMARATE. [Suspect]
     Active Substance: BISOPROLOL FUMARATE
  11. LEVOTHYROXINE SODIUM. [Suspect]
     Active Substance: LEVOTHYROXINE SODIUM
  12. LIORESAL [Suspect]
     Active Substance: BACLOFEN

REACTIONS (3)
  - Aphasia [Recovered/Resolved]
  - Paraparesis [Recovered/Resolved]
  - Myoclonus [Recovered/Resolved]

NARRATIVE: CASE EVENT DATE: 20160421
